FAERS Safety Report 16206315 (Version 3)
Quarter: 2020Q1

REPORT INFORMATION
  Report Type: Spontaneous
  Country: CA (occurrence: CA)
  Receive Date: 20190417
  Receipt Date: 20200124
  Transmission Date: 20200409
  Serious: Yes (Other)
  Sender: FDA-Public Use
  Company Number: CA-AUROBINDO-AUR-APL-2019-019845

PATIENT
  Age: 18 Year
  Sex: Female

DRUGS (3)
  1. FLAGYL [Suspect]
     Active Substance: METRONIDAZOLE\METRONIDAZOLE HYDROCHLORIDE
     Indication: ANAL FISTULA
     Dosage: UNK
     Route: 065
  2. CIPROFLOXACIN. [Suspect]
     Active Substance: CIPROFLOXACIN
     Indication: ANAL FISTULA
     Dosage: UNK
     Route: 065
  3. REMICADE [Suspect]
     Active Substance: INFLIXIMAB
     Indication: CROHN^S DISEASE
     Dosage: 500 MILLIGRAM, 1 EVERY 1 MONTH
     Route: 042

REACTIONS (6)
  - Anal fistula [Recovering/Resolving]
  - Nausea [Recovering/Resolving]
  - Drug ineffective for unapproved indication [Unknown]
  - Diarrhoea [Recovering/Resolving]
  - Eczema asteatotic [Recovering/Resolving]
  - Off label use [Unknown]
